FAERS Safety Report 19946811 (Version 3)
Quarter: 2021Q4

REPORT INFORMATION
  Report Type: Spontaneous
  Country: CH (occurrence: CH)
  Receive Date: 20211012
  Receipt Date: 20211126
  Transmission Date: 20220303
  Serious: Yes (Death, Hospitalization, Other)
  Sender: FDA-Public Use
  Company Number: CH-BOEHRINGERINGELHEIM-2021-BI-132046

PATIENT
  Age: 80 Year
  Sex: Female
  Weight: 50 kg

DRUGS (6)
  1. OFEV [Suspect]
     Active Substance: NINTEDANIB
     Indication: Idiopathic pulmonary fibrosis
     Dosage: DOSAGE: 100MG IN THE MORNING, 150MG IN THE EVENING
     Dates: start: 201603
  2. ELIQUIS [Concomitant]
     Active Substance: APIXABAN
     Indication: Embolic stroke
     Dates: start: 202108
  3. PLAVIX [Concomitant]
     Active Substance: CLOPIDOGREL BISULFATE
     Indication: Coronary arterial stent insertion
     Dates: start: 202108
  4. RAMIPRIL [Concomitant]
     Active Substance: RAMIPRIL
     Indication: Cardiac failure
     Dates: start: 202108
  5. CARVEDILOL [Concomitant]
     Active Substance: CARVEDILOL
     Indication: Cardiac failure
  6. ATORVASTATIN [Concomitant]
     Active Substance: ATORVASTATIN
     Indication: Coronary artery disease

REACTIONS (9)
  - Death [Fatal]
  - Cardiac failure [Unknown]
  - Ischaemia [Unknown]
  - Left ventricular dysfunction [Unknown]
  - Tachycardia [Unknown]
  - Cardiomyopathy [Unknown]
  - Diarrhoea [Unknown]
  - Hypotension [Unknown]
  - Coronary artery disease [Unknown]

NARRATIVE: CASE EVENT DATE: 20210101
